FAERS Safety Report 6836073-6 (Version None)
Quarter: 2010Q3

REPORT INFORMATION
  Report Type: 
  Country: None (occurrence: None)
  Receive Date: 20100713
  Receipt Date: 20100309
  Transmission Date: 20110219
  Serious: Yes (Other)
  Sender: FDA-Public Use
  Company Number: CA-ROCHE-587942

PATIENT
  Sex: Male
  Weight: 68.5 kg

DRUGS (6)
  1. RIBAVIRIN [Suspect]
     Dosage: FREQUENCY: DAILY, LAST DOSE PRIOR TO SAE: 15 AUGUST 2008
     Route: 048
     Dates: start: 20080208
  2. PEGINTERFERON ALFA-2A [Suspect]
     Dosage: DOSE FORM REPORTED AS SYRINGE, LAST DOSE PRIOR TO SAE:08 AUGUST 2008
     Route: 058
     Dates: start: 20080208
  3. CORTISONE CREAM [Concomitant]
     Dosage: FREQUENCY: PRN
     Dates: start: 20060101
  4. IBUPROFEN [Concomitant]
     Dosage: FREQUENCY: PRN
     Dates: start: 20080208
  5. ZOPICLONE [Concomitant]
     Dosage: FREQUENCY: PRN
     Dates: start: 20080226
  6. ALLER-AID [Concomitant]
     Dosage: FREQUENCY: PRN
     Dates: start: 20080501

REACTIONS (2)
  - ANAEMIA [None]
  - SYNCOPE [None]
